FAERS Safety Report 24032931 (Version 1)
Quarter: 2024Q3

REPORT INFORMATION
  Report Type: Spontaneous
  Country: JP (occurrence: JP)
  Receive Date: 20240701
  Receipt Date: 20240701
  Transmission Date: 20241017
  Serious: Yes (Hospitalization, Other)
  Sender: CSL BEHRING
  Company Number: JP-BEH-2024174333

PATIENT
  Age: 4 Decade
  Sex: Male
  Weight: 40 kg

DRUGS (9)
  1. HIZENTRA [Suspect]
     Active Substance: HUMAN IMMUNOGLOBULIN G
     Indication: Hypogammaglobulinaemia
     Dosage: 8 G/40 ML, QW
     Route: 058
  2. CALCIUM ASPARTATE [Concomitant]
     Active Substance: CALCIUM ASPARTATE
     Dosage: 600 MG/DAY
     Route: 048
  3. POTASSIUM ASPARTATE [Concomitant]
     Active Substance: POTASSIUM ASPARTATE
     Dosage: 900 MG/DAY
     Route: 048
  4. ALFACALCIDOL [Concomitant]
     Active Substance: ALFACALCIDOL
     Dosage: 1CAPSULE/DAY
     Route: 048
  5. PREDNISOLONE [Concomitant]
     Active Substance: PREDNISOLONE
     Dosage: 20 MG/DAY
     Route: 048
  6. TOLVAPTAN [Concomitant]
     Active Substance: TOLVAPTAN
     Route: 048
  7. SPIRONOLACTONE [Concomitant]
     Active Substance: SPIRONOLACTONE
     Route: 048
  8. METRONIDAZOLE [Concomitant]
     Active Substance: METRONIDAZOLE
     Route: 042
  9. PIPERACILLIN SODIUM\TAZOBACTAM SODIUM [Concomitant]
     Active Substance: PIPERACILLIN SODIUM\TAZOBACTAM SODIUM
     Route: 042

REACTIONS (15)
  - Breath sounds abnormal [Unknown]
  - Oedema peripheral [Unknown]
  - Pleural effusion [Unknown]
  - Splenomegaly [Unknown]
  - Ascites [Unknown]
  - Spontaneous bacterial peritonitis [Unknown]
  - Pyrexia [Unknown]
  - Lymphoma [Unknown]
  - Intestinal mass [Unknown]
  - Gastrointestinal wall thickening [Unknown]
  - Small intestinal stenosis [Unknown]
  - Protein-losing gastroenteropathy [Unknown]
  - Hypoalbuminaemia [Unknown]
  - Abdominal lymphadenopathy [Unknown]
  - Immunodeficiency common variable [Unknown]
